FAERS Safety Report 15887162 (Version 1)
Quarter: 2019Q1

REPORT INFORMATION
  Report Type: Report from Study
  Country: JP (occurrence: JP)
  Receive Date: 20190130
  Receipt Date: 20190130
  Transmission Date: 20190417
  Serious: No
  Sender: FDA-Public Use
  Company Number: JP-UCBSA-2019003196

PATIENT
  Age: 28 Year
  Sex: Female
  Weight: 45 kg

DRUGS (12)
  1. LACOSAMIDE. [Suspect]
     Active Substance: LACOSAMIDE
     Indication: SIMPLE PARTIAL SEIZURES
     Dosage: 50 MG, ONCE DAILY (QD)
     Route: 048
     Dates: start: 20171209, end: 20171215
  2. TEGRETOL [Suspect]
     Active Substance: CARBAMAZEPINE
     Dosage: 500 MG, ONCE DAILY (QD)
     Route: 048
     Dates: start: 20180210, end: 20180216
  3. E KEPPRA [Suspect]
     Active Substance: LEVETIRACETAM
     Indication: SIMPLE PARTIAL SEIZURES
     Dosage: 3000 MG DAILY
     Route: 048
     Dates: start: 20101105
  4. TEGRETOL [Suspect]
     Active Substance: CARBAMAZEPINE
     Indication: SIMPLE PARTIAL SEIZURES
     Dosage: 650 MG, ONCE DAILY (QD)
     Route: 048
     Dates: start: 199604
  5. TEGRETOL [Suspect]
     Active Substance: CARBAMAZEPINE
     Dosage: 400 MG, ONCE DAILY (QD)
     Route: 048
     Dates: start: 20180217, end: 20180223
  6. LACOSAMIDE. [Suspect]
     Active Substance: LACOSAMIDE
     Dosage: 150 MG, 2X/DAY (BID)
     Route: 048
     Dates: start: 20180112, end: 20180305
  7. MYSTAN [Suspect]
     Active Substance: CLOBAZAM
     Indication: SIMPLE PARTIAL SEIZURES
     Dosage: 25 MG, ONCE DAILY (QD)
     Route: 048
     Dates: start: 20040217
  8. LACOSAMIDE. [Suspect]
     Active Substance: LACOSAMIDE
     Dosage: 100 MG, ONCE DAILY (QD)
     Route: 048
     Dates: start: 20171216, end: 20171222
  9. LACOSAMIDE. [Suspect]
     Active Substance: LACOSAMIDE
     Dosage: 100 MG, 2X/DAY (BID)
     Route: 048
     Dates: start: 20171230, end: 20180111
  10. LACOSAMIDE. [Suspect]
     Active Substance: LACOSAMIDE
     Dosage: 75 MG, 2X/DAY (BID)
     Route: 048
     Dates: start: 20171223, end: 20171229
  11. TOPINA [Suspect]
     Active Substance: TOPIRAMATE
     Indication: SIMPLE PARTIAL SEIZURES
     Dosage: 100 MG, ONCE DAILY (QD)
     Route: 048
     Dates: start: 20160205
  12. CERCINE [Suspect]
     Active Substance: DIAZEPAM
     Indication: SIMPLE PARTIAL SEIZURES
     Dosage: UNK
     Route: 048
     Dates: start: 20170126

REACTIONS (3)
  - Gamma-glutamyltransferase increased [Unknown]
  - Off label use [Unknown]
  - White blood cell count decreased [Unknown]

NARRATIVE: CASE EVENT DATE: 20101105
